FAERS Safety Report 9969950 (Version 5)
Quarter: 2014Q1

REPORT INFORMATION
  Report Type: Spontaneous
  Country: CZ (occurrence: CZ)
  Receive Date: 20140306
  Receipt Date: 20140325
  Transmission Date: 20141002
  Serious: Yes (Hospitalization, Other)
  Sender: FDA-Public Use
  Company Number: CZ-MERCK-1402CZE011543

PATIENT
  Age: 71 Year
  Sex: Female
  Weight: 99 kg

DRUGS (11)
  1. VICTRELIS [Suspect]
     Indication: HEPATITIS C
     Dosage: TID, 12 TABLETS TOTAL DAILY
     Route: 048
     Dates: start: 20131230, end: 20140219
  2. PEGINTRON [Suspect]
     Indication: HEPATITIS C
     Dosage: 150 MICROGRAM QW
     Route: 058
     Dates: start: 20131203, end: 20140217
  3. REBETOL [Suspect]
     Indication: HEPATITIS C
     Dosage: 4 DF, BID
     Route: 048
     Dates: start: 20131203, end: 20140114
  4. REBETOL [Suspect]
     Dosage: 2 DF, BID
     Route: 048
     Dates: start: 20140115, end: 20140123
  5. REBETOL [Suspect]
     Dosage: 1 DF, BID
     Route: 048
     Dates: start: 20140124, end: 20140206
  6. REBETOL [Suspect]
     Dosage: 1 DF, QD
     Route: 048
     Dates: start: 20140207, end: 20140224
  7. FOLIC ACID [Concomitant]
     Indication: ANAEMIA
     Dosage: TID, TOTAL DAILY DOSE 30 MG
     Route: 048
     Dates: start: 20131231, end: 20140228
  8. PYRIDOXINE [Concomitant]
     Indication: NEUTROPENIA
     Dosage: UNK, TID TOTAL DAILY DOSE 60 MG
     Route: 048
     Dates: start: 20131231, end: 20140228
  9. APO-DICLO [Concomitant]
     Indication: BACK PAIN
     Dosage: PRN (BID), TOTAL DAILY DOSE 100 MG
     Route: 048
     Dates: start: 20140128, end: 20140228
  10. APO-DICLO [Concomitant]
     Indication: HEADACHE
  11. VALOSUN BIOPRON 9 [Concomitant]
     Indication: DYSPEPSIA
     Dosage: UNK
     Route: 048
     Dates: start: 20140128

REACTIONS (14)
  - Dehydration [Recovered/Resolved with Sequelae]
  - Diarrhoea [Recovered/Resolved with Sequelae]
  - Hypokalaemia [Recovered/Resolved with Sequelae]
  - Anaemia [Recovering/Resolving]
  - Dyspepsia [Unknown]
  - White blood cell count decreased [Unknown]
  - Platelet count decreased [Unknown]
  - Blood creatinine increased [Unknown]
  - Aspartate aminotransferase increased [Unknown]
  - Blood glucose increased [Unknown]
  - Dysgeusia [Unknown]
  - Abdominal pain [Unknown]
  - Nausea [Unknown]
  - Weight decreased [Unknown]
